FAERS Safety Report 16370103 (Version 1)
Quarter: 2019Q2

REPORT INFORMATION
  Report Type: Spontaneous
  Country: GB (occurrence: GB)
  Receive Date: 20190530
  Receipt Date: 20190530
  Transmission Date: 20190711
  Serious: Yes (Other)
  Sender: FDA-Public Use
  Company Number: GB-SA-2019SA141928

PATIENT
  Age: 65 Year
  Sex: Male

DRUGS (8)
  1. METFORMIN [Suspect]
     Active Substance: METFORMIN HYDROCHLORIDE
  2. INDAPAMIDE. [Suspect]
     Active Substance: INDAPAMIDE
  3. LISINOPRIL. [Suspect]
     Active Substance: LISINOPRIL
  4. GLICLAZIDE [Suspect]
     Active Substance: GLICLAZIDE
  5. ATORVASTATIN [Suspect]
     Active Substance: ATORVASTATIN
     Dosage: UNK
  6. SITAGLIPTIN [Suspect]
     Active Substance: SITAGLIPTIN
  7. OMEPRAZOLE. [Suspect]
     Active Substance: OMEPRAZOLE
     Dosage: UNK
  8. AMLODIPINE [Suspect]
     Active Substance: AMLODIPINE BESYLATE

REACTIONS (2)
  - Diabetic bullosis [Unknown]
  - Blister [Unknown]
